FAERS Safety Report 11463107 (Version 2)
Quarter: 2015Q3

REPORT INFORMATION
  Report Type: Spontaneous
  Country: JP (occurrence: JP)
  Receive Date: 20150905
  Receipt Date: 20150916
  Transmission Date: 20151125
  Serious: Yes (Life-Threatening, Hospitalization, Disabling, Other)
  Sender: FDA-Public Use
  Company Number: JP-BRISTOL-MYERS SQUIBB COMPANY-BMS-2015-057912

PATIENT
  Sex: Female

DRUGS (3)
  1. VEPESIDE [Suspect]
     Active Substance: ETOPOSIDE
     Indication: HISTIOCYTOSIS HAEMATOPHAGIC
     Dosage: 100 MG, QWK
     Route: 041
     Dates: start: 20140726, end: 20140909
  2. DEXAMETHASONE. [Suspect]
     Active Substance: DEXAMETHASONE
     Indication: HISTIOCYTOSIS HAEMATOPHAGIC
     Route: 065
  3. CYCLOSPORIN A [Suspect]
     Active Substance: CYCLOSPORINE
     Indication: HISTIOCYTOSIS HAEMATOPHAGIC
     Route: 065

REACTIONS (2)
  - Cardiac failure acute [Recovering/Resolving]
  - Cataract [Recovered/Resolved with Sequelae]

NARRATIVE: CASE EVENT DATE: 20140912
